FAERS Safety Report 9872245 (Version 2)
Quarter: 2014Q1

REPORT INFORMATION
  Report Type: Spontaneous
  Country: US (occurrence: US)
  Receive Date: 20140205
  Receipt Date: 20140205
  Transmission Date: 20141002
  Serious: No
  Sender: FDA-Public Use
  Company Number: US-ALLERGAN-1306062US

PATIENT
  Sex: Female

DRUGS (2)
  1. BOTOX [Suspect]
     Indication: SPASMODIC DYSPHONIA
     Dosage: 7.5 UNITS, SINGLE
     Route: 030
     Dates: start: 20130313, end: 20130313
  2. BOTOX [Suspect]
     Dosage: 7.5 UNITS, SINGLE
     Route: 030
     Dates: start: 20130313, end: 20130313

REACTIONS (2)
  - Off label use [Unknown]
  - Drug ineffective [Unknown]
